FAERS Safety Report 14250701 (Version 4)
Quarter: 2018Q3

REPORT INFORMATION
  Report Type: Spontaneous
  Country: US (occurrence: US)
  Receive Date: 20171205
  Receipt Date: 20180810
  Transmission Date: 20181010
  Serious: No
  Sender: FDA-Public Use
  Company Number: US-PFIZER INC-2017516068

PATIENT
  Age: 43 Year
  Sex: Female
  Weight: 81 kg

DRUGS (32)
  1. DOCETAXEL. [Suspect]
     Active Substance: DOCETAXEL
     Indication: INVASIVE DUCTAL BREAST CARCINOMA
     Dosage: 75 MG/M2 (DOSE GIVEN RANGED FROM 139 MG TO 141 MG), CYCLIC (EVERY THREE WEEKS, 05 CYCLES)
     Dates: start: 20151207, end: 20160307
  2. DOCETAXEL. [Suspect]
     Active Substance: DOCETAXEL
     Indication: INVASIVE DUCTAL BREAST CARCINOMA
     Dosage: 75 MG/M2 (DOSE GIVEN RANGED FROM 139 MG TO 141 MG), CYCLIC (EVERY THREE WEEKS, 05 CYCLES)
     Dates: start: 20151207, end: 20160307
  3. NYSTATIN. [Concomitant]
     Active Substance: NYSTATIN
     Dosage: UNK
  4. FAMOTIDINE. [Concomitant]
     Active Substance: FAMOTIDINE
     Dosage: UNK
  5. MUPIROCIN. [Concomitant]
     Active Substance: MUPIROCIN
     Dosage: UNK
  6. PHENTERMINE HCL [Concomitant]
     Active Substance: PHENTERMINE HYDROCHLORIDE
     Dosage: UNK
  7. VENLAFAXINE [Concomitant]
     Active Substance: VENLAFAXINE HYDROCHLORIDE
     Dosage: UNK
  8. CLONAZEPAM. [Concomitant]
     Active Substance: CLONAZEPAM
     Dosage: UNK
  9. TRASTUZUMAB. [Concomitant]
     Active Substance: TRASTUZUMAB
     Indication: HORMONE THERAPY
     Dosage: UNK
     Dates: start: 20151207, end: 201611
  10. DOCETAXEL. [Suspect]
     Active Substance: DOCETAXEL
     Indication: INVASIVE DUCTAL BREAST CARCINOMA
     Dosage: 75 MG/M2 (DOSE GIVEN RANGED FROM 139 MG TO 141 MG), CYCLIC (EVERY THREE WEEKS, 05 CYCLES)
     Dates: start: 20151207, end: 20160307
  11. VITAMIN D [Concomitant]
     Active Substance: CHOLECALCIFEROL
     Dosage: UNK
  12. ACETAMINOPHEN. [Concomitant]
     Active Substance: ACETAMINOPHEN
     Dosage: UNK
  13. DOCEFREZ [Suspect]
     Active Substance: DOCETAXEL ANHYDROUS
     Indication: INVASIVE DUCTAL BREAST CARCINOMA
     Dosage: 75 MG/M2 (DOSE GIVEN RANGED FROM 139 MG TO 141 MG), CYCLIC (EVERY THREE WEEKS, 05 CYCLES)
     Dates: start: 20151207, end: 20160307
  14. PERTUZUMAB. [Concomitant]
     Active Substance: PERTUZUMAB
     Indication: HORMONE THERAPY
  15. HERCEPTIN [Concomitant]
     Active Substance: TRASTUZUMAB
     Indication: CHEMOTHERAPY
     Dosage: UNK, INFUSED OVER 90 MINUTES
     Route: 041
  16. DEXAMETHASONE. [Concomitant]
     Active Substance: DEXAMETHASONE
     Dosage: UNK
  17. PROCHLORPERAZINE. [Concomitant]
     Active Substance: PROCHLORPERAZINE
     Dosage: UNK
  18. LEVOTHYROXINE. [Concomitant]
     Active Substance: LEVOTHYROXINE
     Dosage: UNK
     Dates: start: 201412
  19. GABAPENTIN. [Concomitant]
     Active Substance: GABAPENTIN
     Dosage: UNK
  20. DOCETAXEL. [Suspect]
     Active Substance: DOCETAXEL
     Indication: INVASIVE DUCTAL BREAST CARCINOMA
     Dosage: 75 MG/M2 (DOSE GIVEN RANGED FROM 139 MG TO 141 MG), CYCLIC (EVERY THREE WEEKS, 05 CYCLES)
     Dates: start: 20151207, end: 20160307
  21. DOCETAXEL. [Suspect]
     Active Substance: DOCETAXEL
     Indication: INVASIVE DUCTAL BREAST CARCINOMA
     Dosage: 75 MG/M2 (DOSE GIVEN RANGED FROM 139 MG TO 141 MG), CYCLIC (EVERY THREE WEEKS, 05 CYCLES)
     Dates: start: 20151207, end: 20160307
  22. PARAPLATIN [Concomitant]
     Active Substance: CARBOPLATIN
     Indication: CHEMOTHERAPY
     Dosage: UNK
  23. PERTUZUMAB. [Concomitant]
     Active Substance: PERTUZUMAB
     Indication: CHEMOTHERAPY
     Dosage: UNK, INFUSED OVER 1 HOUR
     Route: 041
     Dates: start: 20151207, end: 20160329
  24. NORCO 5 [Concomitant]
     Dosage: UNK
  25. ONDANSETRON [Concomitant]
     Active Substance: ONDANSETRON
     Dosage: UNK
  26. ZYRTEC [Concomitant]
     Active Substance: CETIRIZINE HYDROCHLORIDE
     Dosage: UNK
  27. FLUTICASONE. [Concomitant]
     Active Substance: FLUTICASONE
     Dosage: UNK
  28. TAXOTERE [Suspect]
     Active Substance: DOCETAXEL
     Indication: INVASIVE DUCTAL BREAST CARCINOMA
     Dosage: 75 MG/M2 (DOSE GIVEN RANGED FROM 139 MG TO 141 MG), CYCLIC (EVERY THREE WEEKS, 05 CYCLES)
     Route: 041
     Dates: start: 20151207, end: 20160307
  29. DOCEFREZ [Suspect]
     Active Substance: DOCETAXEL ANHYDROUS
     Indication: INVASIVE DUCTAL BREAST CARCINOMA
     Dosage: 75 MG/M2 (DOSE GIVEN RANGED FROM 139 MG TO 141 MG), CYCLIC (EVERY THREE WEEKS, 05 CYCLES)
     Dates: start: 20151207, end: 20160307
  30. DOCETAXEL. [Suspect]
     Active Substance: DOCETAXEL
     Indication: INVASIVE DUCTAL BREAST CARCINOMA
     Dosage: 75 MG/M2 (DOSE GIVEN RANGED FROM 139 MG TO 141 MG), CYCLIC (EVERY THREE WEEKS, 05 CYCLES)
     Dates: start: 20151207, end: 20160307
  31. DOCETAXEL. [Suspect]
     Active Substance: DOCETAXEL
     Indication: INVASIVE DUCTAL BREAST CARCINOMA
     Dosage: 75 MG/M2 (DOSE GIVEN RANGED FROM 139 MG TO 141 MG), CYCLIC (EVERY THREE WEEKS, 05 CYCLES)
     Dates: start: 20151207, end: 20160307
  32. CARBOPLATIN. [Concomitant]
     Active Substance: CARBOPLATIN
     Indication: CHEMOTHERAPY
     Dosage: UNK, INFUSED OVER 30 MINUTES
     Route: 041

REACTIONS (6)
  - Hair disorder [Not Recovered/Not Resolved]
  - Depression [Unknown]
  - Madarosis [Not Recovered/Not Resolved]
  - Hair colour changes [Not Recovered/Not Resolved]
  - Alopecia [Not Recovered/Not Resolved]
  - Hair texture abnormal [Not Recovered/Not Resolved]
